FAERS Safety Report 11861223 (Version 2)
Quarter: 2016Q1

REPORT INFORMATION
  Report Type: Spontaneous
  Country: US (occurrence: US)
  Receive Date: 20151222
  Receipt Date: 20160119
  Transmission Date: 20160526
  Serious: Yes (Other)
  Sender: FDA-Public Use
  Company Number: US-PFIZER INC-2015453769

PATIENT
  Sex: Female

DRUGS (2)
  1. RELPAX [Suspect]
     Active Substance: ELETRIPTAN HYDROBROMIDE
     Dosage: UNK
  2. CEFZIL [Suspect]
     Active Substance: CEFPROZIL
     Dosage: UNK

REACTIONS (7)
  - Anaphylactic reaction [Unknown]
  - Malaise [Unknown]
  - Urticaria [Unknown]
  - Blood pressure decreased [Unknown]
  - Lip swelling [Unknown]
  - Syncope [Unknown]
  - Joint swelling [Unknown]
